FAERS Safety Report 7042777-5 (Version None)
Quarter: 2010Q4

REPORT INFORMATION
  Report Type: 
  Country: None (occurrence: None)
  Receive Date: 20101013
  Receipt Date: 20091217
  Transmission Date: 20110411
  Serious: No
  Sender: FDA-Public Use
  Company Number: US-ASTRAZENECA-2009SE23161

PATIENT
  Age: 9297 Day
  Sex: Male

DRUGS (4)
  1. SYMBICORT [Suspect]
     Indication: ASTHMA
     Dosage: 160/4.5 MCG 2 PUFFS BID
     Route: 055
     Dates: start: 20080522
  2. ALBUTEROL [Concomitant]
     Indication: ASTHMA
     Route: 055
  3. CLONAZEPAM [Concomitant]
     Indication: ANXIETY
     Route: 048
  4. FLUTICASONE PROPIONATE [Concomitant]
     Indication: RHINITIS
     Route: 045

REACTIONS (2)
  - DRUG INEFFECTIVE [None]
  - DYSPNOEA [None]
